FAERS Safety Report 7107542-9 (Version None)
Quarter: 2010Q4

REPORT INFORMATION
  Report Type: 
  Country: None (occurrence: None)
  Receive Date: 20101117
  Receipt Date: 20101116
  Transmission Date: 20110411
  Serious: Yes (Hospitalization)
  Sender: FDA-Public Use
  Company Number: US-TEVA-254182USA

PATIENT
  Sex: Female
  Weight: 63.56 kg

DRUGS (2)
  1. PLAN B ONE-STEP [Suspect]
     Indication: POST COITAL CONTRACEPTION
     Route: 048
     Dates: start: 20101021, end: 20101021
  2. ALBUTEROL [Concomitant]
     Indication: ASTHMA

REACTIONS (3)
  - FATIGUE [None]
  - PELVIC INFLAMMATORY DISEASE [None]
  - PELVIC PAIN [None]
